FAERS Safety Report 25596086 (Version 1)
Quarter: 2025Q3

REPORT INFORMATION
  Report Type: Spontaneous
  Country: EU (occurrence: EU)
  Receive Date: 20250723
  Receipt Date: 20250723
  Transmission Date: 20251020
  Serious: Yes (Life-Threatening, Other)
  Sender: AUROBINDO
  Company Number: EU-MINISAL02-1048779

PATIENT
  Age: 16 Day
  Sex: Female
  Weight: 0.537 kg

DRUGS (2)
  1. HYDROCHLOROTHIAZIDE [Suspect]
     Active Substance: HYDROCHLOROTHIAZIDE
     Indication: Bronchopulmonary dysplasia
     Dosage: 2 MILLIGRAM, TWO TIMES A DAY
     Route: 048
     Dates: start: 20250614, end: 20250630
  2. SPIRONOLACTONE [Concomitant]
     Active Substance: SPIRONOLACTONE
     Indication: Bronchopulmonary dysplasia
     Route: 048

REACTIONS (4)
  - Diastolic hypotension [Recovered/Resolved]
  - Blood sodium decreased [Recovering/Resolving]
  - Hypochloraemia [Recovering/Resolving]
  - Distributive shock [Recovered/Resolved]

NARRATIVE: CASE EVENT DATE: 20250615
